FAERS Safety Report 4534275-5 (Version None)
Quarter: 2004Q4

REPORT INFORMATION
  Report Type: 
  Country: None (occurrence: None)
  Receive Date: 20041214
  Receipt Date: 20040824
  Transmission Date: 20050328
  Serious: No
  Sender: FDA-Public Use
  Company Number: 2004231426US

PATIENT
  Age: 49 Year
  Sex: Female
  Weight: 82.5 kg

DRUGS (9)
  1. BEXTRA [Suspect]
     Indication: BACK PAIN
     Dosage: 30 MC, QD
     Dates: start: 20040823
  2. ALBUTEROL [Concomitant]
  3. COMBIVENT [Concomitant]
  4. NEXIUM [Concomitant]
  5. CLARITIN [Concomitant]
  6. ZOLOFT [Concomitant]
  7. ELAVIL [Concomitant]
  8. EXCEDRIN (MIGRAINE) [Concomitant]
  9. VICODIN ES [Concomitant]

REACTIONS (3)
  - DRUG INEFFECTIVE [None]
  - FATIGUE [None]
  - LETHARGY [None]
